FAERS Safety Report 15999903 (Version 1)
Quarter: 2019Q1

REPORT INFORMATION
  Report Type: Report from Study
  Country: US (occurrence: US)
  Receive Date: 20190225
  Receipt Date: 20190225
  Transmission Date: 20190418
  Serious: Yes (Hospitalization, Other)
  Sender: FDA-Public Use
  Company Number: US-ELI_LILLY_AND_COMPANY-US201901010678

PATIENT
  Age: 62 Year
  Sex: Female

DRUGS (4)
  1. TERIPARATIDE [Suspect]
     Active Substance: TERIPARATIDE
     Indication: OSTEOPENIA
     Dosage: UNK, UNKNOWN
     Route: 058
  2. TERIPARATIDE [Suspect]
     Active Substance: TERIPARATIDE
     Dosage: UNK, UNKNOWN
     Route: 058
  3. TERIPARATIDE [Suspect]
     Active Substance: TERIPARATIDE
     Indication: OSTEOPOROSIS
     Dosage: UNK, UNKNOWN
     Route: 058
     Dates: start: 201805
  4. DULOXETINE HYDROCHLORIDE. [Suspect]
     Active Substance: DULOXETINE HYDROCHLORIDE
     Indication: PRODUCT USED FOR UNKNOWN INDICATION
     Dosage: 120 MG, UNKNOWN
     Route: 065

REACTIONS (24)
  - Multiple sclerosis [Recovering/Resolving]
  - Injury [Unknown]
  - Fall [Recovered/Resolved]
  - Cerebral haemorrhage [Recovered/Resolved]
  - Concussion [Recovered/Resolved]
  - Loss of consciousness [Unknown]
  - Limb discomfort [Unknown]
  - Nasal injury [Recovered/Resolved]
  - Face injury [Unknown]
  - Contusion [Unknown]
  - Fall [Unknown]
  - Sacroiliac fracture [Recovered/Resolved]
  - Urinary tract infection [Unknown]
  - Spinal column stenosis [Unknown]
  - Arthritis [Unknown]
  - Subdural haematoma [Unknown]
  - Tachycardia [Unknown]
  - Back injury [Unknown]
  - Road traffic accident [Unknown]
  - Escherichia infection [Unknown]
  - Diarrhoea [Recovered/Resolved]
  - Dehydration [Recovered/Resolved]
  - Hip fracture [Recovered/Resolved]
  - Eating disorder [Unknown]

NARRATIVE: CASE EVENT DATE: 2018
